FAERS Safety Report 12224053 (Version 1)
Quarter: 2016Q1

REPORT INFORMATION
  Report Type: Spontaneous
  Country: SK (occurrence: SK)
  Receive Date: 20160330
  Receipt Date: 20160330
  Transmission Date: 20160526
  Serious: Yes (Death)
  Sender: FDA-Public Use
  Company Number: SK-BAUSCH-BL-2016-007364

PATIENT
  Sex: Male

DRUGS (2)
  1. AMMONUL [Suspect]
     Active Substance: SODIUM BENZOATE\SODIUM PHENYLACETATE
     Route: 065
  2. AMMONAPS [Suspect]
     Active Substance: SODIUM PHENYLBUTYRATE
     Indication: ORNITHINE TRANSCARBAMOYLASE DEFICIENCY
     Route: 048

REACTIONS (6)
  - Gastrointestinal obstruction [Unknown]
  - Hyperammonaemic encephalopathy [Fatal]
  - Liver disorder [Fatal]
  - Respiratory failure [Fatal]
  - Brain oedema [Fatal]
  - Metabolic disorder [Unknown]
